FAERS Safety Report 14604054 (Version 1)
Quarter: 2018Q1

REPORT INFORMATION
  Report Type: Report from Study
  Country: VE (occurrence: VE)
  Receive Date: 20180306
  Receipt Date: 20180306
  Transmission Date: 20180509
  Serious: Yes (Hospitalization, Other)
  Sender: FDA-Public Use
  Company Number: PHHY2018VE036245

PATIENT
  Sex: Female

DRUGS (1)
  1. TASIGNA [Suspect]
     Active Substance: NILOTINIB
     Indication: CHRONIC MYELOID LEUKAEMIA
     Dosage: 800 MG, QD
     Route: 065
     Dates: start: 2006

REACTIONS (13)
  - Blood insulin increased [Unknown]
  - Disease recurrence [Unknown]
  - Rheumatoid arthritis [Unknown]
  - Anxiety [Unknown]
  - Fatigue [Unknown]
  - White blood cell count increased [Unknown]
  - Pneumonia [Unknown]
  - Nephrolithiasis [Unknown]
  - Malaise [Unknown]
  - Headache [Unknown]
  - Bronchitis [Unknown]
  - Psychiatric decompensation [Unknown]
  - Contusion [Unknown]
